FAERS Safety Report 23855786 (Version 2)
Quarter: 2024Q2

REPORT INFORMATION
  Report Type: Spontaneous
  Country: US (occurrence: US)
  Receive Date: 20240514
  Receipt Date: 20240520
  Transmission Date: 20240716
  Serious: No
  Sender: FDA-Public Use
  Company Number: US-ABBVIE-5757362

PATIENT
  Sex: Female
  Weight: 49.441 kg

DRUGS (1)
  1. ATOGEPANT [Suspect]
     Active Substance: ATOGEPANT
     Indication: Migraine prophylaxis
     Route: 048

REACTIONS (14)
  - Hypokinesia [Unknown]
  - Migraine [Unknown]
  - Asthenia [Unknown]
  - Feeling abnormal [Unknown]
  - Drug hypersensitivity [Unknown]
  - Asthma [Unknown]
  - Fatigue [Unknown]
  - Palpitations [Unknown]
  - Nightmare [Unknown]
  - Heart valve incompetence [Unknown]
  - Urinary tract infection [Unknown]
  - Gait inability [Unknown]
  - Weight decreased [Unknown]
  - Unevaluable event [Unknown]
